FAERS Safety Report 4641951-2 (Version None)
Quarter: 2005Q2

REPORT INFORMATION
  Report Type: 
  Country: None (occurrence: None)
  Receive Date: 20050420
  Receipt Date: 20050405
  Transmission Date: 20051028
  Serious: Yes (Hospitalization, Other)
  Sender: FDA-Public Use
  Company Number: USA041081646

PATIENT
  Age: 75 Year
  Sex: Female

DRUGS (3)
  1. FORTEO [Suspect]
     Indication: OSTEOPOROSIS
     Dosage: 20 UG/1 DAY
     Dates: start: 20040101
  2. CALCIUM GLUCONATE [Concomitant]
  3. VITAMIN D [Concomitant]

REACTIONS (3)
  - HYPERCALCAEMIA [None]
  - HYPERTENSION [None]
  - MYOCARDIAL INFARCTION [None]
